FAERS Safety Report 22384793 (Version 1)
Quarter: 2023Q2

REPORT INFORMATION
  Report Type: Spontaneous
  Country: US (occurrence: US)
  Receive Date: 20230530
  Receipt Date: 20230530
  Transmission Date: 20230721
  Serious: Yes (Other)
  Sender: FDA-Public Use
  Company Number: US-009507513-2305USA008742

PATIENT
  Age: 80 Year
  Sex: Female

DRUGS (7)
  1. BELSOMRA [Suspect]
     Active Substance: SUVOREXANT
     Indication: Insomnia
     Dosage: DAILY
     Route: 048
     Dates: start: 20230331
  2. BELSOMRA [Suspect]
     Active Substance: SUVOREXANT
     Dosage: TWO PILLS DAILY
     Route: 048
     Dates: start: 20230401
  3. LEVOTHYROXINE [Concomitant]
     Active Substance: LEVOTHYROXINE
     Indication: Thyroid disorder
     Dosage: 75 MG
  4. LOSARTAN [Concomitant]
     Active Substance: LOSARTAN
     Indication: Hypertension
     Dosage: UNK
  5. GABAPENTIN [Concomitant]
     Active Substance: GABAPENTIN
     Indication: Restless legs syndrome
     Dosage: UNK
  6. PREDNISONE [Concomitant]
     Active Substance: PREDNISONE
     Dosage: UNK
  7. PRIMIDONE [Concomitant]
     Active Substance: PRIMIDONE
     Dosage: UNK

REACTIONS (4)
  - Dementia [Unknown]
  - Drug ineffective [Not Recovered/Not Resolved]
  - Cognitive disorder [Unknown]
  - Dry mouth [Unknown]

NARRATIVE: CASE EVENT DATE: 20230101
